FAERS Safety Report 15495051 (Version 9)
Quarter: 2021Q1

REPORT INFORMATION
  Report Type: Spontaneous
  Country: US (occurrence: US)
  Receive Date: 20181012
  Receipt Date: 20210104
  Transmission Date: 20210419
  Serious: No
  Sender: FDA-Public Use
  Company Number: US-PFIZER INC-2018409081

PATIENT
  Age: 61 Year
  Sex: Male

DRUGS (7)
  1. BREO ELLIPTA [Concomitant]
     Active Substance: FLUTICASONE FUROATE\VILANTEROL TRIFENATATE
     Dosage: UNK
     Route: 055
  2. SINGULAIR [Concomitant]
     Active Substance: MONTELUKAST SODIUM
     Dosage: UNK
  3. SUTENT [Suspect]
     Active Substance: SUNITINIB MALATE
     Dosage: 37.5 MG, CYCLIC [37.5MG, TWO WEEKS ON AND ONE WEEK OFF]
     Dates: start: 20200125
  4. TURMERIC [Concomitant]
     Active Substance: HERBALS\TURMERIC
     Dosage: UNK
  5. SUTENT [Suspect]
     Active Substance: SUNITINIB MALATE
     Dosage: 25 MG
     Dates: start: 2019
  6. SUTENT [Suspect]
     Active Substance: SUNITINIB MALATE
     Indication: RENAL CANCER STAGE IV
     Dosage: 37.5 MG, CYCLIC (DAILY FOR 28 DAYS ON/14 DAYS OFF)
     Dates: end: 2018
  7. SUTENT [Suspect]
     Active Substance: SUNITINIB MALATE
     Dosage: 37.5 MG, CYCLIC (2 WEEKS ON / 1 WEEK OFF)
     Dates: start: 20180830

REACTIONS (17)
  - Gait disturbance [Recovered/Resolved]
  - Hyperkeratosis [Unknown]
  - Mental disorder [Unknown]
  - Dry skin [Unknown]
  - Palmar-plantar erythrodysaesthesia syndrome [Not Recovered/Not Resolved]
  - Blister [Recovered/Resolved]
  - Blood pressure increased [Unknown]
  - Pain of skin [Unknown]
  - Arthropod sting [Unknown]
  - Eye swelling [Unknown]
  - Pain [Unknown]
  - Stomatitis [Not Recovered/Not Resolved]
  - Swelling face [Unknown]
  - Skin exfoliation [Unknown]
  - Hand-foot-and-mouth disease [Unknown]
  - Neoplasm progression [Unknown]
  - Skin reaction [Not Recovered/Not Resolved]

NARRATIVE: CASE EVENT DATE: 2018
